FAERS Safety Report 16818367 (Version 2)
Quarter: 2020Q1

REPORT INFORMATION
  Report Type: Spontaneous
  Country: FR (occurrence: FR)
  Receive Date: 20190917
  Receipt Date: 20200131
  Transmission Date: 20200409
  Serious: Yes (Hospitalization)
  Sender: FDA-Public Use
  Company Number: FR-ASTRAZENECA-2019SF29864

PATIENT
  Age: 66 Year
  Sex: Male
  Weight: 72 kg

DRUGS (22)
  1. COVERSYL [Concomitant]
     Active Substance: PERINDOPRIL
  2. RABEPRAZOLE [Concomitant]
     Active Substance: RABEPRAZOLE
  3. AMLOR [Concomitant]
     Active Substance: AMLODIPINE BESYLATE
  4. ERTAPENEM. [Concomitant]
     Active Substance: ERTAPENEM SODIUM
  5. TIENAM [Concomitant]
     Active Substance: CILASTATIN SODIUM\IMIPENEM
  6. BACTRIM [Concomitant]
     Active Substance: SULFAMETHOXAZOLE\TRIMETHOPRIM
     Indication: PNEUMOCYSTIS JIROVECII PNEUMONIA
  7. EZETIMIBE. [Concomitant]
     Active Substance: EZETIMIBE
  8. PIPERACILLIN. [Concomitant]
     Active Substance: PIPERACILLIN SODIUM
     Dates: start: 20190901
  9. IMFINZI [Suspect]
     Active Substance: DURVALUMAB
     Indication: LUNG NEOPLASM MALIGNANT
     Dosage: 10.0MG/KG UNKNOWN
     Route: 041
     Dates: start: 20190507, end: 20190716
  10. ROCEPHINE [Concomitant]
     Active Substance: CEFTRIAXONE SODIUM
  11. TAVANIC [Concomitant]
     Active Substance: LEVOFLOXACIN
     Dates: start: 20190901
  12. METHOTREXATE. [Suspect]
     Active Substance: METHOTREXATE
     Indication: RHEUMATOID ARTHRITIS
     Route: 048
     Dates: start: 20190613, end: 201908
  13. METHOTREXATE. [Suspect]
     Active Substance: METHOTREXATE
     Indication: RHEUMATOID ARTHRITIS
     Route: 048
     Dates: start: 20190627
  14. METHOTREXATE. [Suspect]
     Active Substance: METHOTREXATE
     Indication: RHEUMATOID ARTHRITIS
     Route: 058
     Dates: start: 20190808
  15. KARDEGIC [Concomitant]
     Active Substance: ASPIRIN DL-LYSINE
  16. TAVANIC [Concomitant]
     Active Substance: LEVOFLOXACIN
  17. TAZOBACTAM [Concomitant]
     Active Substance: TAZOBACTAM
     Dates: start: 20190901
  18. CORTICOSTEROID [Concomitant]
     Active Substance: CORTICOSTEROID NOS
  19. CORTANCYL [Concomitant]
     Active Substance: PREDNISONE
  20. IMFINZI [Suspect]
     Active Substance: DURVALUMAB
     Indication: LUNG NEOPLASM MALIGNANT
     Dosage: UNKNOWN
     Route: 041
     Dates: end: 20191030
  21. METHOTREXATE. [Suspect]
     Active Substance: METHOTREXATE
     Indication: RHEUMATOID ARTHRITIS
     Route: 058
     Dates: start: 20190808
  22. AMIKLIN [Concomitant]
     Active Substance: AMIKACIN SULFATE

REACTIONS (3)
  - Lung disorder [Recovering/Resolving]
  - Herpes simplex [Recovered/Resolved]
  - Pyrexia [Recovered/Resolved]

NARRATIVE: CASE EVENT DATE: 201907
